FAERS Safety Report 5827353-1 (Version None)
Quarter: 2008Q3

REPORT INFORMATION
  Report Type: 
  Country: None (occurrence: None)
  Receive Date: 20080730
  Receipt Date: 20080722
  Transmission Date: 20090109
  Serious: Yes (Hospitalization, Other)
  Sender: FDA-Public Use
  Company Number: US-ASTRAZENECA-2008UW14529

PATIENT
  Age: 68 Year
  Sex: Female
  Weight: 117.9 kg

DRUGS (7)
  1. ARIMIDEX [Suspect]
     Indication: BREAST CANCER
     Route: 048
     Dates: start: 20030101
  2. HYDROCODONE BITARTRATE [Concomitant]
  3. POTASSIUM CITRATE [Concomitant]
  4. HYZAAR [Concomitant]
  5. DILTIAZEM HCL [Concomitant]
  6. WARFARIN SODIUM [Concomitant]
  7. ACIPHEX [Concomitant]

REACTIONS (4)
  - ATRIAL FIBRILLATION [None]
  - BACK PAIN [None]
  - NEPHROLITHIASIS [None]
  - POLYP [None]
